FAERS Safety Report 25177084 (Version 2)
Quarter: 2025Q3

REPORT INFORMATION
  Report Type: Spontaneous
  Country: GB (occurrence: GB)
  Receive Date: 20250409
  Receipt Date: 20250809
  Transmission Date: 20251020
  Serious: Yes (Other)
  Sender: ALEXION PHARMACEUTICALS
  Company Number: GB-AstraZeneca-CH-00840655AM

PATIENT
  Sex: Female

DRUGS (1)
  1. EXENATIDE [Suspect]
     Active Substance: EXENATIDE
     Route: 065

REACTIONS (4)
  - Illness [Unknown]
  - Hypoglycaemia [Unknown]
  - Diabetic ketoacidosis [Unknown]
  - Mobility decreased [Unknown]
